FAERS Safety Report 4518154-5 (Version None)
Quarter: 2004Q4

REPORT INFORMATION
  Report Type: 
  Country: None (occurrence: None)
  Receive Date: 20041130
  Receipt Date: 20041118
  Transmission Date: 20050328
  Serious: Yes (Hospitalization)
  Sender: FDA-Public Use
  Company Number: STA-AE-03-MTX-053

PATIENT
  Age: 64 Year
  Sex: Female

DRUGS (9)
  1. METHOTREXATE [Suspect]
     Indication: RHEUMATOID ARTHRITIS
     Dosage: 12.5 MG WEEKLY, ORAL
     Route: 048
     Dates: start: 20021001, end: 20020207
  2. PREMARIN [Concomitant]
  3. CALAN SR (VARAPAMIL HYDROCHLORIDE) [Concomitant]
  4. CLARITIN [Concomitant]
  5. HYDROCHLOROTHIAZIDE [Concomitant]
  6. VIOXX [Concomitant]
  7. PROVENTIL (SALBUTAMOL SULFATE) [Concomitant]
  8. SEREVENT [Concomitant]
  9. AZMAORT (TRIAMCINOLONE ACETONIDE) [Concomitant]

REACTIONS (5)
  - ASTHMA [None]
  - BLOOD POTASSIUM DECREASED [None]
  - CONDITION AGGRAVATED [None]
  - RESPIRATORY TRACT CONGESTION [None]
  - THERAPY NON-RESPONDER [None]
